FAERS Safety Report 5490224-7 (Version None)
Quarter: 2007Q4

REPORT INFORMATION
  Report Type: 
  Country: None (occurrence: None)
  Receive Date: 20071017
  Receipt Date: 20071004
  Transmission Date: 20080405
  Serious: Yes (Hospitalization)
  Sender: FDA-Public Use
  Company Number: US021389

PATIENT
  Age: 38 Year
  Sex: Female

DRUGS (7)
  1. PROVIGIL [Suspect]
     Indication: FATIGUE
     Dosage: 200 MG QD ORAL
     Route: 048
     Dates: start: 20061101, end: 20070801
  2. PROVIGIL [Suspect]
     Indication: MULTIPLE SCLEROSIS
     Dosage: 200 MG QD ORAL
     Route: 048
     Dates: start: 20061101, end: 20070801
  3. ADDERALL 10 [Concomitant]
  4. COPAXONE [Concomitant]
  5. LUNESTA [Concomitant]
  6. XANAX [Concomitant]
  7. VITAMIN E [Concomitant]

REACTIONS (17)
  - BLISTER [None]
  - FOLLICULITIS [None]
  - HYPERHIDROSIS [None]
  - MUSCLE SPASMS [None]
  - MYALGIA [None]
  - NAUSEA [None]
  - POLLAKIURIA [None]
  - PURULENCE [None]
  - PYODERMA GANGRENOSUM [None]
  - PYREXIA [None]
  - RASH [None]
  - RASH ERYTHEMATOUS [None]
  - RESIDUAL URINE [None]
  - SKIN LESION [None]
  - STAPHYLOCOCCAL SKIN INFECTION [None]
  - STREPTOCOCCAL INFECTION [None]
  - TREATMENT NONCOMPLIANCE [None]
